FAERS Safety Report 5522230-8 (Version None)
Quarter: 2007Q4

REPORT INFORMATION
  Report Type: 
  Country: None (occurrence: None)
  Receive Date: 20071120
  Receipt Date: 20071114
  Transmission Date: 20080405
  Serious: Yes (Other)
  Sender: FDA-Public Use
  Company Number: US-JNJFOC-20071105495

PATIENT
  Age: 75 Year
  Sex: Male
  Weight: 72.58 kg

DRUGS (7)
  1. MYLANTA ULTIMATE STRENGTH CHERRY [Suspect]
     Indication: FLATULENCE
     Dosage: 1-3 TABLESPOONS AS NEEDED
  2. NEXIUM [Concomitant]
     Indication: GASTROOESOPHAGEAL REFLUX DISEASE
  3. VITAMINS [Concomitant]
     Indication: GENERAL PHYSICAL CONDITION
  4. CARDURA [Concomitant]
     Indication: HYPERTENSION
     Dosage: 1/2 TABLET OF 2 MG
  5. ATIVAN [Concomitant]
     Indication: INSOMNIA
  6. TOPROL-XL [Concomitant]
     Indication: HYPERTENSION
     Dosage: 1/2 TABLET OF 50 MG
  7. STEROID [Concomitant]
     Indication: BACK DISORDER

REACTIONS (2)
  - BLOOD GLUCOSE INCREASED [None]
  - DIARRHOEA [None]
